FAERS Safety Report 10249861 (Version 2)
Quarter: 2014Q2

REPORT INFORMATION
  Report Type: Report from Study
  Country: CZ (occurrence: CZ)
  Receive Date: 20140620
  Receipt Date: 20140620
  Transmission Date: 20141212
  Serious: Yes (Death, Hospitalization, Disabling)
  Sender: FDA-Public Use
  Company Number: CZ-AMGEN INC.-KDC410097

PATIENT
  Age: 77 Year
  Sex: Male

DRUGS (1)
  1. ROMIPLOSTIM [Suspect]
     Indication: IMMUNE THROMBOCYTOPENIC PURPURA
     Dosage: UNK UNK, QWK
     Route: 058
     Dates: start: 20091125, end: 20100421

REACTIONS (3)
  - Myelofibrosis [Not Recovered/Not Resolved]
  - Malignant neoplasm progression [Fatal]
  - Renal impairment [Fatal]
